FAERS Safety Report 6024214-2 (Version None)
Quarter: 2008Q4

REPORT INFORMATION
  Report Type: 
  Country: None (occurrence: None)
  Receive Date: 20081224
  Receipt Date: 20081219
  Transmission Date: 20090506
  Serious: Yes (Hospitalization)
  Sender: FDA-Public Use
  Company Number: A-US200821446

PATIENT
  Age: 78 Year
  Sex: Female

DRUGS (1)
  1. TRACLEER [Suspect]
     Indication: PULMONARY ARTERIAL HYPERTENSION
     Dosage: ORAL
     Route: 048
     Dates: start: 20080501, end: 20081001

REACTIONS (9)
  - CHEST PAIN [None]
  - DRUG ADMINISTRATION ERROR [None]
  - DYSPHONIA [None]
  - FALL [None]
  - FOREIGN BODY TRAUMA [None]
  - OEDEMA PERIPHERAL [None]
  - OLIGURIA [None]
  - SWELLING FACE [None]
  - WEIGHT INCREASED [None]
